FAERS Safety Report 6481193-1 (Version None)
Quarter: 2009Q4

REPORT INFORMATION
  Report Type: 
  Country: None (occurrence: None)
  Receive Date: 20091208
  Receipt Date: 20090311
  Transmission Date: 20100525
  Serious: No
  Sender: FDA-Public Use
  Company Number: US-AMGEN-KDL338031

PATIENT
  Sex: Female

DRUGS (2)
  1. ENBREL [Suspect]
     Indication: PSORIATIC ARTHROPATHY
     Route: 058
     Dates: start: 20080601
  2. ENBREL [Suspect]
     Indication: PSORIASIS

REACTIONS (2)
  - INJECTION SITE ATROPHY [None]
  - INJECTION SITE HAEMORRHAGE [None]
